FAERS Safety Report 14066961 (Version 2)
Quarter: 2017Q4

REPORT INFORMATION
  Report Type: Spontaneous
  Country: DE (occurrence: DE)
  Receive Date: 20171009
  Receipt Date: 20171112
  Transmission Date: 20180321
  Serious: Yes (Death)
  Sender: FDA-Public Use
  Company Number: PHHY2017DE148310

PATIENT
  Sex: Male

DRUGS (1)
  1. EXELON PATCH [Suspect]
     Active Substance: RIVASTIGMINE
     Indication: DEMENTIA ALZHEIMER^S TYPE
     Dosage: 9.5 MG, QD
     Route: 062
     Dates: start: 20151117

REACTIONS (1)
  - Death [Fatal]

NARRATIVE: CASE EVENT DATE: 20161224
